FAERS Safety Report 23449920 (Version 1)
Quarter: 2024Q1

REPORT INFORMATION
  Report Type: Other
  Country: GB (occurrence: GB)
  Receive Date: 20240129
  Receipt Date: 20240129
  Transmission Date: 20240409
  Serious: Yes (Disabling, Other)
  Sender: FDA-Public Use
  Company Number: None

PATIENT

DRUGS (2)
  1. DEXAMETHASONE [Suspect]
     Active Substance: DEXAMETHASONE
     Indication: Urosepsis
     Dosage: NOT KNOWN. IV, FOLLOWED BY TABLETS FOR 14DAYS ONCE DISCHARGED; ;
     Route: 065
     Dates: start: 20230803, end: 20230820
  2. CIPROFLOXACIN [Suspect]
     Active Substance: CIPROFLOXACIN
     Indication: Urosepsis
     Dosage: IV THEN TABLETS ON DISCHARGE; ;
     Route: 065
     Dates: start: 20230803, end: 20230821

REACTIONS (2)
  - Off label use [Unknown]
  - Tendon rupture [Recovered/Resolved with Sequelae]

NARRATIVE: CASE EVENT DATE: 20230801
